FAERS Safety Report 7497283-0 (Version None)
Quarter: 2011Q2

REPORT INFORMATION
  Report Type: 
  Country: None (occurrence: None)
  Receive Date: 20110523
  Receipt Date: 20110510
  Transmission Date: 20111010
  Serious: Yes (Hospitalization)
  Sender: FDA-Public Use
  Company Number: PHHY2010JP88779

PATIENT
  Sex: Male

DRUGS (14)
  1. AFINITOR [Suspect]
     Dosage: 5 MG DAILY
     Route: 048
     Dates: start: 20100907, end: 20100914
  2. OLMESARTAN MEDOXOMIL [Concomitant]
     Dosage: 5 MG, UNK
     Route: 048
     Dates: start: 20100804
  3. CRESTOR [Concomitant]
     Dosage: 2.5 MG, UNK
     Route: 048
     Dates: start: 20100807
  4. ETODOLAC [Concomitant]
     Indication: METASTATIC RENAL CELL CARCINOMA
     Dosage: 800 MG, UNK
     Route: 048
     Dates: start: 20100929, end: 20101019
  5. DUROTEP [Concomitant]
     Indication: METASTATIC RENAL CELL CARCINOMA
     Dates: start: 20101005, end: 20101014
  6. OXYCONTIN [Concomitant]
     Indication: METASTATIC RENAL CELL CARCINOMA
     Dates: start: 20100929, end: 20101004
  7. BISOPROLOL FUMARATE [Concomitant]
     Dosage: 5 MG, UNK
     Route: 048
  8. GASLON [Concomitant]
     Dosage: 4 MG, UNK
     Route: 048
     Dates: start: 20100929
  9. MAGMITT KENEI [Concomitant]
     Dosage: 330 MG, UNK
     Route: 048
     Dates: start: 20100929
  10. AFINITOR [Suspect]
     Indication: METASTATIC RENAL CELL CARCINOMA
     Dosage: 5 MG DAILY
     Route: 048
     Dates: start: 20100804, end: 20100819
  11. LAXOBERON [Concomitant]
     Route: 048
  12. LENDORMIN [Concomitant]
     Dosage: 0.25 MG, UNK
     Route: 048
     Dates: start: 20100804
  13. FRANDOL [Concomitant]
     Dosage: 40 MG, UNK
     Dates: start: 20100804
  14. CONIEL [Concomitant]
     Dosage: 4 MG, UNK
     Route: 048
     Dates: start: 20100807

REACTIONS (6)
  - ABDOMINAL ABSCESS [None]
  - BACTERIAL INFECTION [None]
  - INTERSTITIAL LUNG DISEASE [None]
  - ABDOMINAL PAIN LOWER [None]
  - DECREASED APPETITE [None]
  - HEPATIC FUNCTION ABNORMAL [None]
